FAERS Safety Report 10507831 (Version 1)
Quarter: 2014Q3

REPORT INFORMATION
  Report Type: Spontaneous
  Country: US (occurrence: None)
  Receive Date: 20140915
  Receipt Date: 20140915
  Transmission Date: 20150326
  Serious: Yes (Other)
  Sender: FDA-Public Use
  Company Number: JPI-P-034547

PATIENT
  Age: 67 Year
  Sex: Female
  Weight: 48.2 kg

DRUGS (4)
  1. XYREM [Suspect]
     Active Substance: SODIUM OXYBATE
     Indication: NARCOLEPSY
     Dosage: SINGLE
     Route: 048
     Dates: start: 201009
  2. ALENDRONATE SODIUM (ALENDRONATE SODIUM) [Concomitant]
  3. MULTIVITAMINS (ERGOCALCIFEROL) [Concomitant]
  4. LUTEIN (XANTOFYL) [Concomitant]

REACTIONS (3)
  - Tremor [None]
  - Depression [None]
  - Anxiety [None]

NARRATIVE: CASE EVENT DATE: 2011
